FAERS Safety Report 5693196-5 (Version None)
Quarter: 2008Q2

REPORT INFORMATION
  Report Type: 
  Country: None (occurrence: None)
  Receive Date: 20080403
  Receipt Date: 20080331
  Transmission Date: 20081010
  Serious: Yes (Other)
  Sender: FDA-Public Use
  Company Number: IT-BRISTOL-MYERS SQUIBB COMPANY-14131353

PATIENT
  Age: 32 Year
  Sex: Female

DRUGS (1)
  1. POTASSIUM CHLORIDE [Suspect]
     Route: 008

REACTIONS (2)
  - DRUG ADMINISTRATION ERROR [None]
  - STRESS CARDIOMYOPATHY [None]
